FAERS Safety Report 7296581-3 (Version None)
Quarter: 2011Q1

REPORT INFORMATION
  Report Type: 
  Country: None (occurrence: None)
  Receive Date: 20110216
  Receipt Date: 20110207
  Transmission Date: 20110831
  Serious: Yes (Hospitalization)
  Sender: FDA-Public Use
  Company Number: PHFR2011GB01216

PATIENT
  Age: 87 Year
  Sex: Male

DRUGS (4)
  1. DICLOFENAC SODIUM [Suspect]
     Indication: OSTEOARTHRITIS
     Dosage: 25 MG, TID
     Route: 048
     Dates: start: 20080708
  2. IBUPROFEN [Concomitant]
     Dosage: UNK
     Dates: start: 20081014
  3. DICLOFENAC SODIUM [Suspect]
     Dosage: UNK
     Route: 048
     Dates: start: 20090529, end: 20100113
  4. NAPROXEN [Suspect]
     Indication: OSTEOARTHRITIS
     Dosage: UNK
     Route: 048
     Dates: start: 20080911, end: 20090529

REACTIONS (4)
  - PRESYNCOPE [None]
  - PULMONARY EMBOLISM [None]
  - METASTASES TO LUNG [None]
  - DYSPNOEA [None]
